FAERS Safety Report 15639531 (Version 1)
Quarter: 2018Q4

REPORT INFORMATION
  Report Type: Spontaneous
  Country: US (occurrence: US)
  Receive Date: 20181120
  Receipt Date: 20181120
  Transmission Date: 20190205
  Serious: Yes (Life-Threatening)
  Sender: FDA-Public Use
  Company Number: US-PERRIGO-18US012789

PATIENT
  Sex: Female

DRUGS (1)
  1. IBUPROFEN. [Suspect]
     Active Substance: IBUPROFEN
     Indication: FOETAL EXPOSURE DURING PREGNANCY
     Dosage: 400 MG, SINGLE
     Route: 064

REACTIONS (4)
  - Premature baby [Unknown]
  - Ductus arteriosus premature closure [Unknown]
  - Foetal heart rate deceleration abnormality [Unknown]
  - Heart valve incompetence [Unknown]
